FAERS Safety Report 4804573-6 (Version None)
Quarter: 2005Q4

REPORT INFORMATION
  Report Type: 
  Country: None (occurrence: None)
  Receive Date: 20051020
  Receipt Date: 20051010
  Transmission Date: 20060501
  Serious: Yes (Hospitalization)
  Sender: FDA-Public Use
  Company Number: US-MERCK-0510USA05806

PATIENT
  Age: 66 Year
  Sex: Female

DRUGS (4)
  1. VIOXX [Suspect]
     Indication: ARTHRITIS
     Route: 048
     Dates: end: 20040930
  2. PREVACID [Concomitant]
     Route: 065
  3. FLUOXETINE [Concomitant]
     Route: 065
  4. TRICOR [Concomitant]
     Route: 065

REACTIONS (1)
  - TACHYCARDIA [None]
